FAERS Safety Report 26109833 (Version 1)
Quarter: 2025Q4

REPORT INFORMATION
  Report Type: Spontaneous
  Country: US (occurrence: None)
  Receive Date: 20251128
  Receipt Date: 20251128
  Transmission Date: 20260118
  Serious: Yes (Hospitalization)
  Sender: FDA-CTU
  Company Number: None

PATIENT
  Sex: Female

DRUGS (1)
  1. ENTECAVIR [Suspect]
     Active Substance: ENTECAVIR
     Indication: Rheumatoid arthritis
     Dosage: 0.5 MG DAILY ORAL ?
     Route: 048
     Dates: start: 20241008

REACTIONS (1)
  - Hypotension [None]
